APPROVED DRUG PRODUCT: ERYTHROMYCIN
Active Ingredient: ERYTHROMYCIN
Strength: 0.5%
Dosage Form/Route: OINTMENT;OPHTHALMIC
Application: A062447 | Product #001
Applicant: PADAGIS US LLC
Approved: Sep 26, 1983 | RLD: No | RS: No | Type: DISCN